FAERS Safety Report 6522099-9 (Version None)
Quarter: 2009Q4

REPORT INFORMATION
  Report Type: 
  Country: None (occurrence: None)
  Receive Date: 20091229
  Receipt Date: 20091229
  Transmission Date: 20100525
  Serious: No
  Sender: FDA-Public Use
  Company Number: None

PATIENT
  Age: 56 Year
  Sex: Male
  Weight: 59 kg

DRUGS (8)
  1. WARFARIN [Suspect]
     Indication: ANTICOAGULANT THERAPY
     Dosage: 5-10 MG PO QD
     Route: 048
     Dates: start: 20091020, end: 20091025
  2. HEPARIN [Suspect]
     Indication: ANTICOAGULANT THERAPY
     Dosage: 1000-850 W/HR IV
     Route: 042
     Dates: start: 20091023, end: 20091026
  3. DIGOXIN [Concomitant]
  4. LOSARTAN [Concomitant]
  5. FUROSEMIDE [Concomitant]
  6. DILTIAZEM [Concomitant]
  7. METOPROLOL TARTRATE [Concomitant]
  8. SPIRONOLACTONE [Concomitant]

REACTIONS (1)
  - HAEMOGLOBIN DECREASED [None]
